FAERS Safety Report 21052596 (Version 1)
Quarter: 2022Q3

REPORT INFORMATION
  Report Type: Spontaneous
  Country: US (occurrence: None)
  Receive Date: 20220707
  Receipt Date: 20220707
  Transmission Date: 20221027
  Serious: Yes (Other)
  Sender: FDA-Public Use
  Company Number: None

PATIENT
  Age: 62 Year
  Sex: Female
  Weight: 95.85 kg

DRUGS (1)
  1. BENLYSTA [Suspect]
     Active Substance: BELIMUMAB
     Indication: Systemic lupus erythematosus
     Dates: start: 20220524, end: 20220706

REACTIONS (11)
  - Infusion related reaction [None]
  - Arthralgia [None]
  - Chest pain [None]
  - Back pain [None]
  - Neck pain [None]
  - Blood pressure increased [None]
  - Swelling face [None]
  - Erythema [None]
  - Chest discomfort [None]
  - Tremor [None]
  - Aphasia [None]

NARRATIVE: CASE EVENT DATE: 20220706
